FAERS Safety Report 4764149-6 (Version None)
Quarter: 2005Q3

REPORT INFORMATION
  Report Type: 
  Country: None (occurrence: None)
  Receive Date: 20050906
  Receipt Date: 20050617
  Transmission Date: 20060218
  Serious: No
  Sender: FDA-Public Use
  Company Number: 2005-BP-10259BP

PATIENT
  Age: 63 Year
  Sex: Female

DRUGS (9)
  1. SPIRIVA [Suspect]
     Indication: ASTHMA
     Dosage: SEE IMAGE
     Route: 055
     Dates: start: 20041101, end: 20041201
  2. SPIRIVA [Suspect]
     Indication: CHRONIC OBSTRUCTIVE PULMONARY DISEASE
     Dosage: SEE IMAGE
     Route: 055
     Dates: start: 20041101, end: 20041201
  3. SPIRIVA [Suspect]
     Indication: ASTHMA
     Dosage: SEE IMAGE
     Route: 055
     Dates: start: 20041201, end: 20050502
  4. SPIRIVA [Suspect]
     Indication: CHRONIC OBSTRUCTIVE PULMONARY DISEASE
     Dosage: SEE IMAGE
     Route: 055
     Dates: start: 20041201, end: 20050502
  5. SPIRIVA [Suspect]
     Indication: ASTHMA
     Dosage: SEE IMAGE
     Route: 055
     Dates: start: 20050502
  6. SPIRIVA [Suspect]
     Indication: CHRONIC OBSTRUCTIVE PULMONARY DISEASE
     Dosage: SEE IMAGE
     Route: 055
     Dates: start: 20050502
  7. PULMICORT [Concomitant]
  8. ZYRTEC [Concomitant]
  9. SINGULAIR [Concomitant]

REACTIONS (4)
  - BLINDNESS [None]
  - MACULAR OEDEMA [None]
  - RETINAL VEIN OCCLUSION [None]
  - VISION BLURRED [None]
